FAERS Safety Report 14748080 (Version 1)
Quarter: 2018Q2

REPORT INFORMATION
  Report Type: Spontaneous
  Country: SN (occurrence: SN)
  Receive Date: 20180411
  Receipt Date: 20180411
  Transmission Date: 20180711
  Serious: Yes (Death, Other)
  Sender: FDA-Public Use
  Company Number: PHHY2018SN056078

PATIENT
  Age: 45 Year
  Sex: Female

DRUGS (2)
  1. CLOBETASOL PROPIONATE. [Suspect]
     Active Substance: CLOBETASOL PROPIONATE
     Indication: SKIN COSMETIC PROCEDURE
     Dosage: UNK
     Route: 061
  2. HYDROQUINONE. [Suspect]
     Active Substance: HYDROQUINONE
     Indication: SKIN COSMETIC PROCEDURE
     Dosage: UNK
     Route: 061

REACTIONS (4)
  - Product use in unapproved indication [Unknown]
  - Squamous cell carcinoma of skin [Fatal]
  - Lichenoid keratosis [Unknown]
  - Metastases to bone [Unknown]
